FAERS Safety Report 9260475 (Version 1)
Quarter: 2013Q2

REPORT INFORMATION
  Report Type: Spontaneous
  Country: NO (occurrence: NO)
  Receive Date: 20130429
  Receipt Date: 20130429
  Transmission Date: 20140414
  Serious: Yes (Other)
  Sender: FDA-Public Use
  Company Number: NO-JNJFOC-20130412027

PATIENT
  Age: 64 Year
  Sex: Male
  Weight: 80 kg

DRUGS (10)
  1. REMICADE [Suspect]
     Indication: CROHN^S DISEASE
     Route: 042
     Dates: start: 20130415
  2. REMICADE [Suspect]
     Indication: CROHN^S DISEASE
     Dosage: 80 WEEKS AGO FROM THE DATE OF REPORT, DOSE CALCULATED AS PER 5 MG/KG
     Route: 042
     Dates: start: 201110
  3. PLAVIX [Concomitant]
     Route: 065
  4. MAREVAN [Concomitant]
     Route: 065
  5. SELO-ZOK [Concomitant]
     Route: 065
  6. LIPITOR [Concomitant]
     Route: 065
  7. LYRICA [Concomitant]
     Route: 065
  8. PARACET [Concomitant]
     Dosage: 1*2
     Route: 065
  9. SALAZOPYRIN [Concomitant]
     Dosage: 2*2
     Route: 065
  10. ALBYL-E [Concomitant]
     Route: 065

REACTIONS (3)
  - Cerebral infarction [Unknown]
  - Epilepsy [Unknown]
  - Infusion related reaction [Recovered/Resolved]
